FAERS Safety Report 6891628-8 (Version None)
Quarter: 2010Q3

REPORT INFORMATION
  Report Type: 
  Country: None (occurrence: None)
  Receive Date: 20100731
  Receipt Date: 20071116
  Transmission Date: 20110219
  Serious: No
  Sender: FDA-Public Use
  Company Number: US-PFIZER INC-2007074415

PATIENT
  Sex: Female
  Weight: 63.6 kg

DRUGS (7)
  1. NEURONTIN [Suspect]
     Indication: DIABETIC NEUROPATHY
     Route: 048
     Dates: start: 19990101
  2. INSULIN LISPRO [Concomitant]
     Indication: DIABETES MELLITUS
     Route: 042
  3. HUMULIN R [Concomitant]
     Indication: DIABETES MELLITUS
     Route: 042
  4. ACETAMINOPHEN [Concomitant]
     Indication: ARTHRITIS
     Route: 048
  5. PLAVIX [Concomitant]
     Route: 048
  6. LIPITOR [Concomitant]
     Route: 048
  7. LOVASTATIN [Concomitant]

REACTIONS (1)
  - DRUG INEFFECTIVE [None]
